FAERS Safety Report 9137102 (Version 1)
Quarter: 2013Q1

REPORT INFORMATION
  Report Type: Spontaneous
  Country: US (occurrence: US)
  Receive Date: 20130219
  Receipt Date: 20130219
  Transmission Date: 20140127
  Serious: No
  Sender: FDA-Public Use
  Company Number: US-BRISTOL-MYERS SQUIBB COMPANY-16799041

PATIENT
  Sex: Female

DRUGS (1)
  1. ABATACEPT SUBQ INJECTION 125MG/ML [Suspect]
     Dosage: PRESCRIPTION #: 360884?TOTAL LIFE CARE
     Route: 058

REACTIONS (3)
  - Needle issue [Unknown]
  - Injury associated with device [Unknown]
  - Fatigue [Unknown]
